FAERS Safety Report 12684577 (Version 2)
Quarter: 2016Q3

REPORT INFORMATION
  Report Type: Spontaneous
  Country: US (occurrence: US)
  Receive Date: 20160825
  Receipt Date: 20160902
  Transmission Date: 20161109
  Serious: No
  Sender: FDA-Public Use
  Company Number: US-GLAXOSMITHKLINE-US2016GSK119948

PATIENT
  Sex: Female

DRUGS (1)
  1. TANZEUM [Suspect]
     Active Substance: ALBIGLUTIDE
     Indication: PRODUCT USED FOR UNKNOWN INDICATION
     Dosage: 50 MG, U
     Route: 042

REACTIONS (7)
  - Tongue discomfort [Unknown]
  - Nervousness [Unknown]
  - Product quality issue [Unknown]
  - Device leakage [Unknown]
  - Underdose [Unknown]
  - Heart rate increased [Unknown]
  - Ear discomfort [Unknown]

NARRATIVE: CASE EVENT DATE: 20160817
